FAERS Safety Report 6498050-7 (Version None)
Quarter: 2009Q4

REPORT INFORMATION
  Report Type: 
  Country: None (occurrence: None)
  Receive Date: 20091215
  Receipt Date: 20091210
  Transmission Date: 20100525
  Serious: Yes (Death, Other)
  Sender: FDA-Public Use
  Company Number: PHHY2009MX48412

PATIENT
  Sex: Male

DRUGS (5)
  1. ZELMAC [Suspect]
     Indication: IRRITABLE BOWEL SYNDROME
     Dosage: 1 TABLET PER DAY
     Route: 048
     Dates: start: 20090919
  2. AROPAX [Concomitant]
     Dosage: UNK
     Dates: start: 20091026
  3. AMIODARONE HCL [Concomitant]
     Dosage: UNK
     Dates: start: 19731028
  4. CORMANITEK [Concomitant]
  5. NUVOS [Concomitant]

REACTIONS (4)
  - ABDOMINAL DISCOMFORT [None]
  - CENTRAL NERVOUS SYSTEM VIRAL INFECTION [None]
  - CEREBRAL PALSY [None]
  - DEATH [None]
